FAERS Safety Report 8797474 (Version 3)
Quarter: 2012Q4

REPORT INFORMATION
  Report Type: 
  Country: US (occurrence: US)
  Receive Date: 20120920
  Receipt Date: 20121220
  Transmission Date: 20130627
  Serious: No
  Sender: FDA-Public Use
  Company Number: US-PFIZER INC-2012228439

PATIENT
  Age: 78 Year
  Sex: Female
  Weight: 81.63 kg

DRUGS (7)
  1. VENLAFAXINE HYDROCHLORIDE [Suspect]
     Indication: POST-TRAUMATIC STRESS DISORDER
     Dosage: 150 mg, 2x/day
     Dates: start: 201204, end: 201206
  2. EFFEXOR XR [Suspect]
     Indication: POST-TRAUMATIC STRESS DISORDER
     Dosage: 150 mg, 2x/day
     Dates: start: 20020802
  3. EFFEXOR XR [Suspect]
     Indication: DEPRESSION
     Dosage: 150 mg, 2x/day
     Route: 048
     Dates: start: 2008
  4. EFFEXOR XR [Suspect]
     Indication: ANXIETY
  5. CLONAZEPAM [Suspect]
     Indication: POST-TRAUMATIC STRESS DISORDER
     Dosage: 0.5 mg, 2x/day
     Dates: start: 2002
  6. CLONAZEPAM [Suspect]
     Indication: DEPRESSION
  7. KLONOPIN [Concomitant]
     Indication: ANXIETY
     Dosage: 0.5 mg, 2x/day
     Dates: start: 2008

REACTIONS (10)
  - Weight increased [Not Recovered/Not Resolved]
  - Nausea [Recovered/Resolved]
  - Irritability [Recovered/Resolved]
  - Mood altered [Recovered/Resolved]
  - Constipation [Recovered/Resolved]
  - Faeces discoloured [Recovered/Resolved]
  - Visual acuity reduced [Unknown]
  - Nervousness [Unknown]
  - Emotional disorder [Unknown]
  - Social fear [Unknown]
